FAERS Safety Report 18361942 (Version 2)
Quarter: 2020Q4

REPORT INFORMATION
  Report Type: Spontaneous
  Country: CA (occurrence: CA)
  Receive Date: 20201008
  Receipt Date: 20201102
  Transmission Date: 20210114
  Serious: Yes (Death, Hospitalization)
  Sender: FDA-Public Use
  Company Number: CA-TEVA-2020-CA-1835188

PATIENT
  Age: 60 Year
  Sex: Male

DRUGS (8)
  1. BORTEZOMIB. [Suspect]
     Active Substance: BORTEZOMIB
     Indication: PLASMA CELL MYELOMA
     Dosage: INITIALLY 4 CYCLES IN COMBINATION WITH THALIDOMIDE AND DEXAMETHASONE
     Route: 065
  2. MYCOPHENOLATE MOFETIL. [Suspect]
     Active Substance: MYCOPHENOLATE MOFETIL
     Indication: PROPHYLAXIS AGAINST GRAFT VERSUS HOST DISEASE
     Dosage: STARTED AFTER TRANSPLANT
     Route: 065
  3. PREDNISONE. [Suspect]
     Active Substance: PREDNISONE
     Indication: GRAFT VERSUS HOST DISEASE IN GASTROINTESTINAL TRACT
     Dosage: STARTED AFTER THE DEVELOPMENT OF DIARRHOEA REQUIRING FIRST HOSPITALISATION
     Route: 048
  4. TACROLIMUS. [Suspect]
     Active Substance: TACROLIMUS
     Indication: PROPHYLAXIS AGAINST GRAFT VERSUS HOST DISEASE
     Dosage: STARTED AFTER AUTOLOGOUS HAEMATOPOIETIC STEM CELL TRANSPLANT AT AN UNKNOWN DOSE; CONTINUED DURING...
     Route: 065
  5. PREDNISONE. [Suspect]
     Active Substance: PREDNISONE
     Dosage: 50 MILLIGRAM DAILY;
     Route: 065
  6. TACROLIMUS. [Suspect]
     Active Substance: TACROLIMUS
     Dosage: DOSE ADJUSTED TO MAINTAIN LEVELS BETWEEN 8 TO 12 NG/ML DURING 2ND HOSPITALISATION
     Route: 065
  7. BORTEZOMIB. [Suspect]
     Active Substance: BORTEZOMIB
     Dosage: 26 PLANNED DOSES AS CONSOLIDATION THERAPY STARTED 120 DAYS AFTER HSCT AS PART OF AN INSTITUTIONAL...
     Route: 065
  8. PREDNISONE. [Suspect]
     Active Substance: PREDNISONE
     Dosage: 15 MILLIGRAM DAILY; DOSE AT THE TIME OF 2ND ADMISSION ON DAY +204; LATER DOSE INCREASED AFTER BORTEZ
     Route: 065

REACTIONS (13)
  - Central nervous system infection [Fatal]
  - Disseminated intravascular coagulation [Unknown]
  - Hypotension [Unknown]
  - Coma [Unknown]
  - Kidney infection [Fatal]
  - Adenovirus infection [Fatal]
  - Hepatic infection [Fatal]
  - Oliguria [Unknown]
  - Pneumonia [Fatal]
  - Cystitis [Fatal]
  - Cystitis haemorrhagic [Recovered/Resolved]
  - Hepatic failure [Unknown]
  - Gastrointestinal infection [Fatal]
